FAERS Safety Report 8880630 (Version 1)
Quarter: 2012Q4

REPORT INFORMATION
  Report Type: 
  Country: US (occurrence: US)
  Receive Date: 20121031
  Receipt Date: 20121031
  Transmission Date: 20130627
  Serious: Yes (Other)
  Sender: FDA-Public Use
  Company Number: US-ASTRAZENECA-2012SE79998

PATIENT
  Age: 65 Year
  Sex: Female
  Weight: 71.2 kg

DRUGS (5)
  1. NEXIUM [Suspect]
     Indication: GASTROOESOPHAGEAL REFLUX DISEASE
     Route: 048
     Dates: start: 201012
  2. LEVOXYL [Concomitant]
     Indication: HYPOTHYROIDISM
  3. METROGEL [Concomitant]
     Indication: ROSACEA
  4. CARVEDILOL [Concomitant]
     Indication: BLOOD PRESSURE FLUCTUATION
  5. ASPIRIN [Concomitant]
     Route: 048
     Dates: start: 201209

REACTIONS (4)
  - Transient ischaemic attack [Unknown]
  - Dysarthria [Unknown]
  - Swollen tongue [Unknown]
  - Dysphagia [Unknown]
